FAERS Safety Report 9838336 (Version 1)
Quarter: 2014Q1

REPORT INFORMATION
  Report Type: Spontaneous
  Country: CA (occurrence: CA)
  Receive Date: 20140123
  Receipt Date: 20140123
  Transmission Date: 20141002
  Serious: Yes (Hospitalization)
  Sender: FDA-Public Use
  Company Number: CA-BAYER-2014-010402

PATIENT
  Age: 96 Year
  Sex: Female
  Weight: 62 kg

DRUGS (2)
  1. ASPIRIN [Suspect]
     Dosage: 1 DF, QD
     Route: 048
  2. PRADAXA [Suspect]
     Dosage: 2 DF, QD
     Route: 048

REACTIONS (6)
  - Anaemia [Recovered/Resolved]
  - Asthenia [Recovered/Resolved]
  - Blood potassium increased [Recovered/Resolved]
  - Gastrointestinal haemorrhage [Recovered/Resolved]
  - Haemoglobin decreased [Recovered/Resolved]
  - Platelet count decreased [Recovered/Resolved]
